FAERS Safety Report 5085309-3 (Version None)
Quarter: 2006Q3

REPORT INFORMATION
  Report Type: 
  Country: None (occurrence: None)
  Receive Date: 20060731
  Receipt Date: 20050926
  Transmission Date: 20061208
  Serious: Yes (Hospitalization, Other)
  Sender: FDA-Public Use
  Company Number: 200513002GDS

PATIENT
  Age: 75 Year
  Sex: Female

DRUGS (1)
  1. MOXIFLOXACIN HCL [Suspect]
     Indication: PNEUMONIA
     Dosage: 400 MG, QD, INTRAVENOUS
     Route: 042

REACTIONS (3)
  - PULSE ABSENT [None]
  - TORSADE DE POINTES [None]
  - VENTRICULAR TACHYCARDIA [None]
